FAERS Safety Report 21153450 (Version 1)
Quarter: 2022Q3

REPORT INFORMATION
  Report Type: Report from Study
  Country: US (occurrence: US)
  Receive Date: 20220731
  Receipt Date: 20220731
  Transmission Date: 20221027
  Serious: Yes (Hospitalization)
  Sender: FDA-Public Use
  Company Number: US-BIOGEN-2022BI01142177

PATIENT
  Age: 35 Year
  Sex: Female

DRUGS (2)
  1. VUMERITY [Suspect]
     Active Substance: DIROXIMEL FUMARATE
     Indication: Multiple sclerosis
     Route: 050
     Dates: start: 20220111, end: 20220717
  2. VUMERITY [Suspect]
     Active Substance: DIROXIMEL FUMARATE
     Dates: start: 20220718

REACTIONS (3)
  - Urinary tract infection [Recovered/Resolved]
  - Loss of consciousness [Unknown]
  - Gait inability [Unknown]

NARRATIVE: CASE EVENT DATE: 20220705
